FAERS Safety Report 11896015 (Version 1)
Quarter: 2016Q1

REPORT INFORMATION
  Report Type: Spontaneous
  Country: US (occurrence: US)
  Receive Date: 20160107
  Receipt Date: 20160107
  Transmission Date: 20160526
  Serious: No
  Sender: FDA-Public Use
  Company Number: US-FRI-1000072847

PATIENT
  Sex: Female

DRUGS (1)
  1. BYSTOLIC [Suspect]
     Active Substance: NEBIVOLOL HYDROCHLORIDE
     Indication: HYPERTENSION
     Dosage: 5MG
     Dates: start: 20141119, end: 20141204

REACTIONS (5)
  - Haematochezia [Unknown]
  - Headache [Unknown]
  - Unevaluable event [Unknown]
  - Constipation [Unknown]
  - Gastrointestinal pain [Unknown]
